FAERS Safety Report 7079581-8 (Version None)
Quarter: 2010Q4

REPORT INFORMATION
  Report Type: 
  Country: None (occurrence: None)
  Receive Date: 20101022
  Receipt Date: 20101007
  Transmission Date: 20110411
  Serious: Yes (Other)
  Sender: FDA-Public Use
  Company Number: 2010004411

PATIENT
  Sex: Female

DRUGS (9)
  1. TARCEVA [Suspect]
     Indication: PANCREATIC CARCINOMA
     Dosage: 100 MG, QD, ORAL
     Route: 048
     Dates: start: 20100901
  2. LYRICA [Suspect]
     Indication: PRODUCT USED FOR UNKNOWN INDICATION
     Dates: end: 20100901
  3. GEMZAR [Concomitant]
  4. OXYCONTIN [Concomitant]
  5. FUSID (FUROSEMIDE) [Concomitant]
  6. NAPROXEN [Concomitant]
  7. INSULIN (INSULIN) [Concomitant]
  8. CANDESARTAN CILEXETIL [Concomitant]
  9. PRESSOLAT (NIFEDIPINE) [Concomitant]

REACTIONS (3)
  - ANAEMIA [None]
  - HAEMOGLOBIN DECREASED [None]
  - TREMOR [None]
